FAERS Safety Report 9924436 (Version 1)
Quarter: 2014Q1

REPORT INFORMATION
  Report Type: Spontaneous
  Country: FR (occurrence: None)
  Receive Date: 20140220
  Receipt Date: 20140220
  Transmission Date: 20141002
  Serious: Yes (Hospitalization, Other)
  Sender: FDA-Public Use
  Company Number: SYM-2014-17180

PATIENT
  Age: 73 Year
  Sex: Male

DRUGS (8)
  1. FLAGYL [Suspect]
     Indication: INFECTION
     Dosage: INTRAVENOUS (NOT OTHERWISE SPECIFIED)?
     Route: 042
     Dates: start: 200611
  2. PIPERACILLINTAZOBACTAM [Suspect]
     Indication: INFECTION
     Dosage: INTRAVENOUS (NOT OTHERWISE SPECIFIED)?
     Route: 042
     Dates: start: 200611
  3. TRIFLUCAN [Suspect]
     Indication: INFECTION
     Dosage: INTRAVENOUS (NOT OTHERWISE SPECIFIED)
     Route: 042
  4. EFFEXOR (VENLAFAXINE HYDROCHLORIDE) (VENLAFAXINE HYDROCHLORIDE) [Concomitant]
  5. INEXIUM (ESOMEPRAZOLE MAGNESIUM) (ESOMEPRZOLE MAGNESIUM) [Concomitant]
  6. GELOX (GELOX) (MAGNESIUM HYDROXIDE), MONTMORILLONITE, ALUMINIUM HYDROXIDE) [Concomitant]
  7. LOVENOX (ENOXAPARIN SODIUM) (ENOXAPARIN SODIUM) [Concomitant]
  8. DIFFU K (POTASSIUM CHLORIDE) (POTASSIUM CHLORIDE) [Concomitant]

REACTIONS (2)
  - Agranulocytosis [None]
  - Disease recurrence [None]
